FAERS Safety Report 21682354 (Version 1)
Quarter: 2022Q4

REPORT INFORMATION
  Report Type: Spontaneous
  Country: JP (occurrence: JP)
  Receive Date: 20221205
  Receipt Date: 20221205
  Transmission Date: 20230113
  Serious: Yes (Hospitalization, Other)
  Sender: FDA-Public Use
  Company Number: JP-BRISTOL-MYERS SQUIBB COMPANY-BMS-2021-134380

PATIENT
  Age: 64 Year
  Sex: Male
  Weight: 58 kg

DRUGS (1)
  1. OPDIVO [Suspect]
     Active Substance: NIVOLUMAB
     Indication: Gastric cancer
     Dosage: UNK
     Route: 041
     Dates: end: 20180607

REACTIONS (11)
  - Hypothyroidism [Unknown]
  - Diarrhoea [Unknown]
  - Asthenia [Unknown]
  - Hepatic function abnormal [Unknown]
  - Gait inability [Unknown]
  - Eyelid ptosis [Unknown]
  - Hypokalaemia [Unknown]
  - Chronic inflammatory demyelinating polyradiculoneuropathy [Recovering/Resolving]
  - Blood magnesium decreased [Unknown]
  - Hypoaesthesia [Unknown]
  - Hypocalcaemia [Unknown]

NARRATIVE: CASE EVENT DATE: 20180501
